FAERS Safety Report 9560447 (Version 1)
Quarter: 2013Q3

REPORT INFORMATION
  Report Type: Spontaneous
  Country: US (occurrence: US)
  Receive Date: 20130927
  Receipt Date: 20130927
  Transmission Date: 20140515
  Serious: No
  Sender: FDA-Public Use
  Company Number: US-BIOGENIDEC-2013BI051067

PATIENT
  Age: 46 Year
  Sex: Female

DRUGS (5)
  1. TECFIDERA [Suspect]
     Indication: MULTIPLE SCLEROSIS
     Route: 048
     Dates: start: 20130518
  2. TECFIDERA [Suspect]
     Indication: MULTIPLE SCLEROSIS
     Route: 048
     Dates: start: 20130523, end: 20130523
  3. ESTRADIOL [Concomitant]
  4. VITAMINS/ MINERALS [Concomitant]
  5. WELLBUTRIN [Concomitant]

REACTIONS (3)
  - Bronchospasm [Unknown]
  - Swollen tongue [Unknown]
  - Pharyngeal oedema [Unknown]
